FAERS Safety Report 9100830 (Version 2)
Quarter: 2013Q1

REPORT INFORMATION
  Report Type: Spontaneous
  Country: JP (occurrence: JP)
  Receive Date: 20130215
  Receipt Date: 20130228
  Transmission Date: 20140127
  Serious: No
  Sender: FDA-Public Use
  Company Number: JP-JNJFOC-20130202109

PATIENT
  Age: 7 Decade
  Sex: Male

DRUGS (4)
  1. DUROTEP MT [Suspect]
     Indication: CANCER PAIN
     Route: 062
  2. DUROTEP MT [Suspect]
     Indication: CANCER PAIN
     Route: 062
  3. DUROTEP MT [Suspect]
     Indication: CANCER PAIN
     Route: 062
  4. DUROTEP MT [Suspect]
     Indication: CANCER PAIN
     Dosage: 25UG/HR PLUS 12.5UG/HR
     Route: 062

REACTIONS (2)
  - Wrong technique in drug usage process [Unknown]
  - Feeling abnormal [Recovered/Resolved]
